FAERS Safety Report 6015230-5 (Version None)
Quarter: 2008Q4

REPORT INFORMATION
  Report Type: 
  Country: None (occurrence: None)
  Receive Date: 20081222
  Receipt Date: 20081219
  Transmission Date: 20090506
  Serious: Yes (Hospitalization)
  Sender: FDA-Public Use
  Company Number: FR-WYE-G02822608

PATIENT
  Sex: Male

DRUGS (1)
  1. ADVIL [Suspect]
     Indication: PYREXIA
     Dosage: ONE SINGLE DOSE
     Route: 048
     Dates: start: 20081203, end: 20081203

REACTIONS (5)
  - DRUG HYPERSENSITIVITY [None]
  - EYE OEDEMA [None]
  - FACE OEDEMA [None]
  - PALATAL OEDEMA [None]
  - RASH [None]
